FAERS Safety Report 8163961-3 (Version None)
Quarter: 2012Q1

REPORT INFORMATION
  Report Type: 
  Country: None (occurrence: None)
  Receive Date: 20120224
  Receipt Date: 20120210
  Transmission Date: 20120608
  Serious: Yes (Life-Threatening, Hospitalization, Other)
  Sender: FDA-Public Use
  Company Number: US-ACTELION-A-NJ2011-47701

PATIENT

DRUGS (16)
  1. TRACLEER [Suspect]
     Indication: PULMONARY ARTERIAL HYPERTENSION
     Dosage: 125 MG, BID
     Route: 048
     Dates: start: 20101201
  2. TRACLEER [Suspect]
     Dosage: 62.5 MG, BID
     Route: 048
     Dates: start: 20101102, end: 20101201
  3. VICODIN [Concomitant]
  4. ALDACTONE [Concomitant]
  5. PERCOLONE [Concomitant]
  6. ENBREL [Concomitant]
  7. BUMEX [Concomitant]
  8. POTASSIUM CHLORIDE [Concomitant]
  9. LYRICA [Concomitant]
  10. FOLIC ACID [Concomitant]
  11. EPOPROSTENOL SODIUM [Suspect]
     Indication: PULMONARY ARTERIAL HYPERTENSION
     Dosage: 12 NG/KG, PER MIN
     Route: 041
     Dates: start: 20110511
  12. MYCOPHENOLATE MOFETIL (CELLCEPT) [Concomitant]
  13. NEXIUM [Concomitant]
  14. ZOLOFT [Concomitant]
  15. MULTI-VITAMIN [Concomitant]
  16. PLAQUENIL [Concomitant]

REACTIONS (13)
  - HYPOXIA [None]
  - COR PULMONALE [None]
  - ANGINA PECTORIS [None]
  - CHEST PAIN [None]
  - SYSTEMIC LUPUS ERYTHEMATOSUS [None]
  - PAIN [None]
  - PULMONARY ARTERIAL HYPERTENSION [None]
  - DISEASE PROGRESSION [None]
  - DYSPNOEA [None]
  - VOMITING [None]
  - FATIGUE [None]
  - ASTHENIA [None]
  - SYNCOPE [None]
